FAERS Safety Report 11711632 (Version 1)
Quarter: 2015Q4

REPORT INFORMATION
  Report Type: Spontaneous
  Country: US (occurrence: US)
  Receive Date: 20151104
  Receipt Date: 20151104
  Transmission Date: 20160304
  Serious: No
  Sender: FDA-Public Use
  Company Number: US-ELI_LILLY_AND_COMPANY-US201105000315

PATIENT
  Age: 50 Year
  Sex: Female

DRUGS (5)
  1. FORTEO [Suspect]
     Active Substance: TERIPARATIDE
     Dosage: 20 UG, QD
  2. CALCIUM + VITAMIN D [Concomitant]
     Active Substance: CALCIUM\VITAMIN D
  3. LEXAPRO [Concomitant]
     Active Substance: ESCITALOPRAM OXALATE
     Dosage: 10 ML, QD
  4. FORTEO [Suspect]
     Active Substance: TERIPARATIDE
     Indication: FRACTURE
     Dosage: 20 UG, QD
     Dates: start: 20110418
  5. MORPHINE [Concomitant]
     Active Substance: MORPHINE

REACTIONS (14)
  - Injection site bruising [Unknown]
  - Limb injury [Unknown]
  - Injection site haemorrhage [Recovered/Resolved]
  - Off label use [Unknown]
  - Memory impairment [Unknown]
  - Muscle spasms [Unknown]
  - Crying [Unknown]
  - Injection site pain [Unknown]
  - Constipation [Not Recovered/Not Resolved]
  - Nausea [Unknown]
  - Haemorrhage [Unknown]
  - Injection site erythema [Not Recovered/Not Resolved]
  - Depression [Unknown]
  - Vomiting [Unknown]

NARRATIVE: CASE EVENT DATE: 201105
